FAERS Safety Report 9935528 (Version 1)
Quarter: 2014Q1

REPORT INFORMATION
  Report Type: Spontaneous
  Country: US (occurrence: US)
  Receive Date: 20140228
  Receipt Date: 20140228
  Transmission Date: 20141002
  Serious: No
  Sender: FDA-Public Use
  Company Number: US-PFIZER INC-2014056996

PATIENT
  Age: 37 Year
  Sex: Male
  Weight: 83.9 kg

DRUGS (5)
  1. NEURONTIN [Suspect]
     Indication: NERVE INJURY
     Dosage: 600 MG, 4X/DAY
     Dates: end: 2013
  2. TIZANIDINE [Concomitant]
     Indication: MUSCLE RELAXANT THERAPY
     Dosage: 2 MG, 3X/DAY
  3. MELATONIN [Concomitant]
     Indication: SLEEP DISORDER
     Dosage: 5 MG, DAILY
  4. MELOXICAM [Concomitant]
     Dosage: 15 MG, DAILY
  5. OXYCODONE [Concomitant]
     Dosage: 10 MG, (EVERY 5 HOURS)

REACTIONS (2)
  - Eye swelling [Unknown]
  - Rash erythematous [Unknown]
